FAERS Safety Report 5528329-4 (Version None)
Quarter: 2007Q4

REPORT INFORMATION
  Report Type: 
  Country: None (occurrence: None)
  Receive Date: 20071128
  Receipt Date: 20071122
  Transmission Date: 20080405
  Serious: Yes (Other)
  Sender: FDA-Public Use
  Company Number: FR-PFIZER INC-2007098363

PATIENT
  Sex: Female

DRUGS (2)
  1. PIROXICAM [Suspect]
     Indication: BACK PAIN
     Route: 042
  2. PROCAINE HCL [Interacting]
     Indication: BACK PAIN
     Route: 042

REACTIONS (3)
  - DRUG INTERACTION [None]
  - INJECTION SITE ATROPHY [None]
  - INTENTIONAL DRUG MISUSE [None]
